FAERS Safety Report 4959245-4 (Version None)
Quarter: 2006Q1

REPORT INFORMATION
  Report Type: 
  Country: None (occurrence: None)
  Receive Date: 20060127
  Receipt Date: 20050908
  Transmission Date: 20060701
  Serious: Yes (Death, Hospitalization)
  Sender: FDA-Public Use
  Company Number: 2005-US-00061

PATIENT
  Age: 49 Year
  Sex: Male

DRUGS (12)
  1. CLOZAPINE [Suspect]
     Indication: SCHIZOPHRENIA
     Dosage: 600 MG, ORAL
     Route: 048
     Dates: start: 19990201, end: 20050819
  2. ZIPRASIDONE HCL [Suspect]
     Dosage: 120 MG, QD
     Dates: start: 20050819, end: 20050901
  3. HALOPERIDOL DECANOATE [Concomitant]
  4. TRIHEXYPHENIDYL HYDROCHLORIDE [Concomitant]
  5. SUCRALFATE [Concomitant]
  6. LORATADINE [Concomitant]
  7. GEMFIBROZIL [Concomitant]
  8. METOCLOPRAMIDE [Concomitant]
  9. PANTOPRAZOLE [Concomitant]
  10. MAGNESIUM OXIDE [Concomitant]
  11. MACROGOL [Concomitant]
  12. DOCUSATE SODIUM [Concomitant]

REACTIONS (4)
  - DIZZINESS [None]
  - NAUSEA [None]
  - UNEVALUABLE EVENT [None]
  - VOMITING [None]
